FAERS Safety Report 23563894 (Version 1)
Quarter: 2024Q1

REPORT INFORMATION
  Report Type: Spontaneous
  Country: JP (occurrence: JP)
  Receive Date: 20240226
  Receipt Date: 20240226
  Transmission Date: 20240410
  Serious: Yes (Hospitalization)
  Sender: FDA-Public Use
  Company Number: JP-CHUGAI-2024005006

PATIENT
  Age: 83 Year
  Sex: Male
  Weight: 81.3 kg

DRUGS (7)
  1. TECENTRIQ [Suspect]
     Active Substance: ATEZOLIZUMAB
     Indication: Hepatic cancer
     Dosage: 1200 MILLIGRAM, QD
     Route: 065
     Dates: start: 20230711, end: 20231226
  2. AVASTIN [Suspect]
     Active Substance: BEVACIZUMAB
     Indication: Hepatic cancer
     Dosage: UNK
     Route: 065
     Dates: start: 20230711, end: 20231226
  3. ENTRESTO [Concomitant]
     Active Substance: SACUBITRIL\VALSARTAN
     Dosage: UNK
     Dates: start: 20231003, end: 20240120
  4. ADALAT [Concomitant]
     Active Substance: NIFEDIPINE
     Dosage: UNK
     Dates: start: 20231226, end: 20240115
  5. VONOPRAZAN FUMARATE [Concomitant]
     Active Substance: VONOPRAZAN FUMARATE
     Dosage: UNK
     Dates: start: 20231226, end: 20240123
  6. GLYCOSAMINOGLYCANS [Concomitant]
     Active Substance: GLYCOSAMINOGLYCANS
     Dosage: UNK
     Dates: start: 20230801
  7. EURAX [Concomitant]
     Active Substance: CROTAMITON
     Dosage: UNK
     Dates: start: 20231024

REACTIONS (2)
  - Immune-mediated cholangitis [Not Recovered/Not Resolved]
  - Post procedural haemorrhage [Unknown]

NARRATIVE: CASE EVENT DATE: 20231205
